FAERS Safety Report 24588160 (Version 1)
Quarter: 2024Q4

REPORT INFORMATION
  Report Type: Spontaneous
  Country: CN (occurrence: CN)
  Receive Date: 20241107
  Receipt Date: 20241107
  Transmission Date: 20250114
  Serious: Yes (Hospitalization, Disabling, Other)
  Sender: Kenvue
  Company Number: CN-KENVUE-20241100817

PATIENT

DRUGS (2)
  1. TYLENOL [Suspect]
     Active Substance: ACETAMINOPHEN
     Indication: Pyrexia
     Dosage: 1 GRAM, ONCE A DAY
     Route: 048
     Dates: start: 20240827, end: 20240901
  2. IBUPROFEN [Suspect]
     Active Substance: IBUPROFEN
     Indication: Pyrexia
     Dosage: 0.3 GRAM, TWICE A DAY
     Route: 048

REACTIONS (3)
  - Liver injury [Recovering/Resolving]
  - Coma [Recovering/Resolving]
  - Incorrect dose administered [Unknown]

NARRATIVE: CASE EVENT DATE: 20240827
